FAERS Safety Report 16676800 (Version 8)
Quarter: 2019Q4

REPORT INFORMATION
  Report Type: Spontaneous
  Country: DE (occurrence: DE)
  Receive Date: 20190807
  Receipt Date: 20191126
  Transmission Date: 20200122
  Serious: Yes (Hospitalization, Other)
  Sender: FDA-Public Use
  Company Number: DE-AUROBINDO-AUR-APL-2019-046304

PATIENT
  Age: 53 Year
  Sex: Female
  Weight: 75 kg

DRUGS (9)
  1. ZOMETA [Concomitant]
     Active Substance: ZOLEDRONIC ACID
     Indication: PAIN
  2. CHOLECALCIFEROL [Concomitant]
     Active Substance: CHOLECALCIFEROL
     Indication: PRODUCT USED FOR UNKNOWN INDICATION
     Dosage: 1 DOSAGE FORM, ONCE A DAY, (MORNING)
     Route: 065
  3. PANTOPRAZOLE [Concomitant]
     Active Substance: PANTOPRAZOLE
     Indication: PRODUCT USED FOR UNKNOWN INDICATION
     Dosage: 1 DOSAGE FORM, ONCE A DAY, (MORNING)
     Route: 065
  4. KISQALI [Suspect]
     Active Substance: RIBOCICLIB
     Indication: BREAST CANCER METASTATIC
     Dosage: 600 MILLIGRAM, ONCE A DAY (IN THE EVENINGS)
     Route: 048
     Dates: start: 20190128, end: 20190913
  5. NOVAMINSULFON [Concomitant]
     Active Substance: METAMIZOLE
     Indication: PAIN
     Dosage: UNK UNK, PRN (AS NEEDED)
     Route: 048
  6. ZOMETA [Concomitant]
     Active Substance: ZOLEDRONIC ACID
     Indication: BREAST CANCER
     Dosage: 4 MILLIGRAM, EVERY 4 WEEK
     Route: 041
     Dates: start: 20190128
  7. LETROZOLE. [Suspect]
     Active Substance: LETROZOLE
     Indication: BREAST CANCER METASTATIC
     Dosage: 2.5 MILLIGRAM, ONCE A DAY (IN THE EVENINGS)
     Route: 048
     Dates: start: 20190128, end: 20190913
  8. CHOLECALCIFEROL [Concomitant]
     Active Substance: CHOLECALCIFEROL
     Dosage: 500 INTERNATIONAL UNIT, ONCE A DAY  (MORNING)
     Route: 065
     Dates: start: 20190808
  9. PANTOPRAZOLE [Concomitant]
     Active Substance: PANTOPRAZOLE
     Dosage: 40 MILLIGRAM, ONCE A DAY(MORNING)
     Route: 065
     Dates: start: 20190808

REACTIONS (14)
  - Weight increased [Unknown]
  - Haemoglobin decreased [Recovered/Resolved]
  - Aortic arteriosclerosis [Unknown]
  - Aortic elongation [Unknown]
  - Food allergy [Unknown]
  - Pleural effusion [Recovering/Resolving]
  - Rash [Recovered/Resolved]
  - Emphysema [Unknown]
  - Aspiration pleural cavity [Recovered/Resolved]
  - Dyspnoea [Recovered/Resolved]
  - General physical condition abnormal [Unknown]
  - Fatigue [Unknown]
  - Breath sounds abnormal [Unknown]
  - Hypocalcaemia [Recovered/Resolved]

NARRATIVE: CASE EVENT DATE: 20190715
